FAERS Safety Report 8920003 (Version 1)
Quarter: 2012Q4

REPORT INFORMATION
  Report Type: 
  Country: US (occurrence: US)
  Receive Date: 20121121
  Receipt Date: 20121121
  Transmission Date: 20130627
  Serious: No
  Sender: FDA-Public Use
  Company Number: US-PFIZER INC-2012288439

PATIENT
  Sex: Female

DRUGS (4)
  1. AMLODIPINE BESILATE [Suspect]
     Indication: BLOOD PRESSURE HIGH
     Dosage: 5 mg, daily
  2. AMLODIPINE BESILATE [Suspect]
     Dosage: 10 mg, daily
  3. AMLODIPINE BESILATE [Suspect]
     Dosage: 5 mg, 2x/day
  4. NYSTATIN [Concomitant]
     Indication: CANDIDIASIS
     Dosage: UNK

REACTIONS (2)
  - Drug ineffective [Unknown]
  - Malaise [Unknown]
